FAERS Safety Report 4820928-8 (Version None)
Quarter: 2005Q4

REPORT INFORMATION
  Report Type: 
  Country: None (occurrence: None)
  Receive Date: 20051104
  Receipt Date: 20051026
  Transmission Date: 20060501
  Serious: Yes (Life-Threatening, Hospitalization)
  Sender: FDA-Public Use
  Company Number: AT-BRISTOL-MYERS SQUIBB COMPANY-13158050

PATIENT
  Age: 69 Year
  Sex: Female
  Weight: 76 kg

DRUGS (2)
  1. BICNU [Suspect]
     Route: 042
     Dates: start: 20050801, end: 20050801
  2. PALIFERMIN [Suspect]
     Indication: MUCOSAL INFLAMMATION
     Route: 042
     Dates: start: 20050729, end: 20050731

REACTIONS (3)
  - ANAPHYLACTIC SHOCK [None]
  - GINGIVAL SWELLING [None]
  - SWELLING FACE [None]
